FAERS Safety Report 7575222-1 (Version None)
Quarter: 2011Q2

REPORT INFORMATION
  Report Type: 
  Country: None (occurrence: None)
  Receive Date: 20110627
  Receipt Date: 20101215
  Transmission Date: 20111010
  Serious: Yes (Death, Other)
  Sender: FDA-Public Use
  Company Number: US-BAYER-201041941NA

PATIENT
  Age: 69 Year
  Sex: Female
  Weight: 83.9 kg

DRUGS (10)
  1. ALBUTEROL SULFATE AUTOHALER [Concomitant]
     Dosage: NEBULIZER
     Route: 055
  2. BETAMETHASONE VALERATE [Concomitant]
  3. ISOSORBIDE MONONITRATE [Concomitant]
     Dosage: 60 MG, UNK
     Route: 048
  4. IPRATROPIUM BROMIDE [Concomitant]
     Route: 055
  5. HYDROCODONE BITARTRATE AND ACETAMINOPHEN [Concomitant]
     Dosage: 0.5-750
     Route: 048
  6. CONTRAST MEDIA [Concomitant]
     Indication: CATHETERISATION CARDIAC
     Dosage: UNK
     Dates: start: 20060701
  7. ZOCOR [Concomitant]
  8. VERPAMIL HCL [Concomitant]
     Dosage: 240 MG, UNK
     Route: 048
  9. TRASYLOL [Suspect]
     Indication: CORONARY ARTERY BYPASS
     Dosage: UNK
     Route: 042
     Dates: start: 20060717
  10. TORSEMIDE [Concomitant]
     Dosage: 20 MG, UNK
     Route: 048

REACTIONS (14)
  - RENAL FAILURE [None]
  - INJURY [None]
  - EMOTIONAL DISORDER [None]
  - DEATH [None]
  - STRESS [None]
  - FEAR [None]
  - RENAL IMPAIRMENT [None]
  - RENAL INJURY [None]
  - MULTI-ORGAN FAILURE [None]
  - AMNESIA [None]
  - EMOTIONAL DISTRESS [None]
  - ANXIETY [None]
  - PAIN [None]
  - CONFUSIONAL STATE [None]
